FAERS Safety Report 9790946 (Version 1)
Quarter: 2013Q4

REPORT INFORMATION
  Report Type: Report from Study
  Country: NL (occurrence: NL)
  Receive Date: 20131231
  Receipt Date: 20131231
  Transmission Date: 20140711
  Serious: Yes (Death)
  Sender: FDA-Public Use
  Company Number: NL-ABBVIE-13P-114-1113347-00

PATIENT
  Age: 83 Year
  Sex: Male

DRUGS (1)
  1. LUPRON [Suspect]
     Indication: PROSTATE CANCER
     Route: 058
     Dates: start: 20120119, end: 20130322

REACTIONS (1)
  - Death [Fatal]
